FAERS Safety Report 4827994-4 (Version None)
Quarter: 2005Q4

REPORT INFORMATION
  Report Type: 
  Country: None (occurrence: None)
  Receive Date: 20051110
  Receipt Date: 20051031
  Transmission Date: 20060501
  Serious: Yes (Other)
  Sender: FDA-Public Use
  Company Number: 2005150712

PATIENT
  Sex: Male
  Weight: 93.441 kg

DRUGS (8)
  1. PROCARDIA XL [Suspect]
     Indication: ANGINA PECTORIS
     Dosage: 60 MG (60 MG, QD INTERVAL: EVERY DAY), ORAL
     Route: 048
  2. PROCARDIA XL [Suspect]
     Indication: HYPERTENSION
     Dosage: 60 MG (60 MG, QD INTERVAL: EVERY DAY), ORAL
     Route: 048
  3. PROCARDIA [Suspect]
     Indication: ANGINA PECTORIS
     Dosage: ORAL
     Route: 048
     Dates: start: 19790101
  4. PROCARDIA [Suspect]
     Indication: HYPERTENSION
     Dosage: ORAL
     Route: 048
     Dates: start: 19790101
  5. ALTACE [Concomitant]
  6. FOLIC ACID [Concomitant]
  7. GLUCOSAMINE W/CHONDROITIN SULFATES (ASCORBIC ACID, CHONDROITIN SULFATE [Concomitant]
  8. COENZYME Q10 [Concomitant]

REACTIONS (6)
  - CORONARY ARTERY SURGERY [None]
  - DIZZINESS [None]
  - DRUG TOXICITY [None]
  - HYPERCHOLESTEROLAEMIA [None]
  - OEDEMA PERIPHERAL [None]
  - SOMNOLENCE [None]
